FAERS Safety Report 12206985 (Version 1)
Quarter: 2016Q1

REPORT INFORMATION
  Report Type: Spontaneous
  Country: None (occurrence: JP)
  Receive Date: 20160324
  Receipt Date: 20160324
  Transmission Date: 20160526
  Serious: Yes (Other)
  Sender: FDA-Public Use
  Company Number: JP-GUERBET LLC-1049574

PATIENT
  Sex: Male

DRUGS (3)
  1. EPIRUBICIN HYDROCHLORIDE. [Concomitant]
     Active Substance: EPIRUBICIN HYDROCHLORIDE
     Route: 065
  2. LIPIODOL [Suspect]
     Active Substance: ETHIODIZED OIL
     Indication: THERAPEUTIC EMBOLISATION
     Route: 013
  3. MITOMYCIN. [Concomitant]
     Active Substance: MITOMYCIN
     Route: 065

REACTIONS (4)
  - Off label use [Unknown]
  - Pyrexia [Recovering/Resolving]
  - Septic shock [Recovering/Resolving]
  - Liver abscess [Recovering/Resolving]
